FAERS Safety Report 14929050 (Version 1)
Quarter: 2018Q2

REPORT INFORMATION
  Report Type: Spontaneous
  Country: GB (occurrence: GB)
  Receive Date: 20180523
  Receipt Date: 20180523
  Transmission Date: 20180711
  Serious: Yes (Hospitalization)
  Sender: FDA-Public Use
  Company Number: GB-MYLANLABS-2018M1033924

PATIENT
  Age: 74 Year
  Sex: Female

DRUGS (1)
  1. NITROFURANTOIN. [Suspect]
     Active Substance: NITROFURANTOIN
     Indication: INFECTION PROPHYLAXIS
     Dosage: 100 MG, QD, FOR TWO YEARS
     Route: 065

REACTIONS (2)
  - Autoimmune hepatitis [Recovered/Resolved]
  - Hepatic failure [Recovered/Resolved]
